FAERS Safety Report 7530635-9 (Version None)
Quarter: 2011Q2

REPORT INFORMATION
  Report Type: 
  Country: None (occurrence: None)
  Receive Date: 20110607
  Receipt Date: 20110525
  Transmission Date: 20111010
  Serious: Yes (Disabling, Other)
  Sender: FDA-Public Use
  Company Number: GB-BAYER-2011-047128

PATIENT
  Age: 39 Year
  Sex: Male

DRUGS (2)
  1. CIPROFLOXACIN [Suspect]
     Indication: URINARY TRACT INFECTION
     Dosage: UNK
     Dates: start: 20101101
  2. DICLOFENAC SODIUM [Concomitant]

REACTIONS (25)
  - DIZZINESS [None]
  - PANIC ATTACK [None]
  - HEADACHE [None]
  - GAIT DISTURBANCE [None]
  - MUSCLE TWITCHING [None]
  - INJURY [None]
  - FEELING COLD [None]
  - PARAESTHESIA [None]
  - PRURITUS [None]
  - TINNITUS [None]
  - HYPERACUSIS [None]
  - FORMICATION [None]
  - LYMPHADENITIS [None]
  - DYSKINESIA [None]
  - PERINEAL PAIN [None]
  - PENILE PAIN [None]
  - HAEMATOCHEZIA [None]
  - HEART RATE IRREGULAR [None]
  - JOINT CREPITATION [None]
  - MOUTH ULCERATION [None]
  - GINGIVITIS [None]
  - DISORIENTATION [None]
  - PROCTALGIA [None]
  - AXILLARY PAIN [None]
  - SKIN BURNING SENSATION [None]
